FAERS Safety Report 7259404-4 (Version None)
Quarter: 2011Q1

REPORT INFORMATION
  Report Type: 
  Country: None (occurrence: None)
  Receive Date: 20110129
  Receipt Date: 20100824
  Transmission Date: 20110831
  Serious: No
  Sender: FDA-Public Use
  Company Number: US-ABBOTT-10P-163-0666286-00

PATIENT
  Age: 58 Year
  Sex: Female

DRUGS (1)
  1. HUMIRA [Suspect]
     Indication: PSORIATIC ARTHROPATHY
     Dosage: 80 MG ONCE
     Dates: start: 20100824, end: 20100824

REACTIONS (3)
  - NAUSEA [None]
  - HYPERHIDROSIS [None]
  - DIZZINESS [None]
